FAERS Safety Report 5631760-X (Version None)
Quarter: 2008Q1

REPORT INFORMATION
  Report Type: 
  Country: None (occurrence: None)
  Receive Date: 20080219
  Receipt Date: 20080219
  Transmission Date: 20080703
  Serious: Yes (Hospitalization)
  Sender: FDA-Public Use
  Company Number: None

PATIENT
  Sex: Male
  Weight: 92.3 kg

DRUGS (1)
  1. TEMOZOLOMIDE [Suspect]
     Dosage: 2310 MG

REACTIONS (7)
  - ACTIVITIES OF DAILY LIVING IMPAIRED [None]
  - ASTHENIA [None]
  - FATIGUE [None]
  - PNEUMONIA [None]
  - SUBDURAL HAEMATOMA [None]
  - THERAPEUTIC AGENT TOXICITY [None]
  - WALKING AID USER [None]
